FAERS Safety Report 8309242 (Version 13)
Quarter: 2013Q3

REPORT INFORMATION
  Report Type: Spontaneous
  Country: US (occurrence: US)
  Receive Date: 20111223
  Receipt Date: 20130916
  Transmission Date: 20140515
  Serious: Yes (Hospitalization)
  Sender: FDA-Public Use
  Company Number: US-BIOGENIDEC-2011BI047824

PATIENT
  Age: 51 Year
  Sex: Female

DRUGS (7)
  1. AVONEX [Suspect]
     Indication: MULTIPLE SCLEROSIS
     Route: 030
  2. AVONEX [Suspect]
     Indication: MULTIPLE SCLEROSIS
     Route: 030
     Dates: start: 20110222, end: 20121026
  3. AVONEX [Suspect]
     Indication: MULTIPLE SCLEROSIS
     Route: 030
     Dates: start: 20130401, end: 201306
  4. BACLOFEN [Concomitant]
     Dates: start: 2001
  5. XANAX [Concomitant]
     Route: 048
  6. VALIUM [Concomitant]
     Route: 048
  7. MORPHINE [Concomitant]

REACTIONS (47)
  - Rheumatoid arthritis [Not Recovered/Not Resolved]
  - Scoliosis [Not Recovered/Not Resolved]
  - Intervertebral disc injury [Unknown]
  - Device breakage [Unknown]
  - Intervertebral disc disorder [Recovered/Resolved]
  - Spinal fracture [Not Recovered/Not Resolved]
  - Muscle atrophy [Not Recovered/Not Resolved]
  - Thrombosis [Recovered/Resolved]
  - Intervertebral disc degeneration [Not Recovered/Not Resolved]
  - Back pain [Not Recovered/Not Resolved]
  - Nervousness [Unknown]
  - Aggression [Recovered/Resolved]
  - Stomatitis [Unknown]
  - Skin exfoliation [Unknown]
  - Burning sensation [Unknown]
  - Feeling of body temperature change [Unknown]
  - Thyroid disorder [Unknown]
  - Hypoaesthesia [Not Recovered/Not Resolved]
  - Lymphadenopathy [Not Recovered/Not Resolved]
  - Blister [Not Recovered/Not Resolved]
  - Scar [Unknown]
  - Superficial vein prominence [Unknown]
  - Weight decreased [Not Recovered/Not Resolved]
  - Procedural pain [Not Recovered/Not Resolved]
  - Inflammation [Not Recovered/Not Resolved]
  - Local swelling [Not Recovered/Not Resolved]
  - Chromaturia [Not Recovered/Not Resolved]
  - Irritability [Unknown]
  - Spinal disorder [Not Recovered/Not Resolved]
  - Posture abnormal [Not Recovered/Not Resolved]
  - Intervertebral disc protrusion [Unknown]
  - Injection site haemorrhage [Recovered/Resolved]
  - Photopsia [Unknown]
  - Carpal tunnel syndrome [Unknown]
  - Tendonitis [Unknown]
  - Vision blurred [Unknown]
  - Depression [Not Recovered/Not Resolved]
  - Anxiety [Unknown]
  - Fatigue [Not Recovered/Not Resolved]
  - Nausea [Recovered/Resolved]
  - Urticaria [Unknown]
  - Pain [Unknown]
  - Myalgia [Unknown]
  - Heart rate increased [Unknown]
  - Decreased appetite [Not Recovered/Not Resolved]
  - Influenza like illness [Unknown]
  - Arthritis [Not Recovered/Not Resolved]
